FAERS Safety Report 7548539-4 (Version None)
Quarter: 2011Q2

REPORT INFORMATION
  Report Type: 
  Country: None (occurrence: None)
  Receive Date: 20110608
  Receipt Date: 20110524
  Transmission Date: 20111010
  Serious: Yes (Other)
  Sender: FDA-Public Use
  Company Number: AUR-APL-2010-02456

PATIENT
  Age: 49 Year
  Sex: Female

DRUGS (6)
  1. RAMIPRIL [Concomitant]
  2. CLOZAPINE [Suspect]
     Indication: SCHIZOPHRENIA
     Dosage: 600 MG - ORAL
     Route: 048
     Dates: start: 20050207
  3. AMISULPRIDE [Concomitant]
     Indication: SCHIZOPHRENIA
     Dates: end: 20100801
  4. TEMAZEPAM [Concomitant]
  5. PAROXETINE HCL [Concomitant]
  6. LAMOTRIGINE [Suspect]
     Indication: SCHIZOPHRENIA
     Dates: end: 20100801

REACTIONS (12)
  - ABSCESS [None]
  - WHITE BLOOD CELL COUNT INCREASED [None]
  - DISSEMINATED INTRAVASCULAR COAGULATION [None]
  - MENTAL IMPAIRMENT [None]
  - BREAST ABSCESS [None]
  - PLATELET COUNT DECREASED [None]
  - BREAST CANCER METASTATIC [None]
  - METASTASES TO SPINE [None]
  - WHITE BLOOD CELL COUNT DECREASED [None]
  - NEUTROPHIL COUNT INCREASED [None]
  - INFLUENZA LIKE ILLNESS [None]
  - GENERAL PHYSICAL HEALTH DETERIORATION [None]
